FAERS Safety Report 25057854 (Version 3)
Quarter: 2025Q4

REPORT INFORMATION
  Report Type: Report from Study
  Country: EU (occurrence: EU)
  Receive Date: 20250310
  Receipt Date: 20251021
  Transmission Date: 20260117
  Serious: No
  Sender: EISAI
  Company Number: EU-Eisai-EC-2025-185198

PATIENT
  Age: 48 Year
  Sex: Male

DRUGS (3)
  1. LENVATINIB [Suspect]
     Active Substance: LENVATINIB
     Indication: Non-small cell lung cancer
     Route: 048
     Dates: start: 20250219, end: 20250227
  2. PEMBROLIZUMAB [Suspect]
     Active Substance: PEMBROLIZUMAB
     Indication: Non-small cell lung cancer
     Dosage: FREQUENCY: ONE TIME ONLY (OTO)
     Route: 042
     Dates: start: 20250219, end: 20250219
  3. CORADIPIN [Concomitant]

REACTIONS (1)
  - Haemoptysis [Recovered/Resolved]

NARRATIVE: CASE EVENT DATE: 20250220
